FAERS Safety Report 24301986 (Version 1)
Quarter: 2024Q3

REPORT INFORMATION
  Report Type: Spontaneous
  Country: JP (occurrence: JP)
  Receive Date: 20240910
  Receipt Date: 20240910
  Transmission Date: 20241016
  Serious: Yes (Death, Other)
  Sender: GILEAD
  Company Number: JP-GILEAD-2024-0683347

PATIENT
  Age: 83 Year
  Sex: Female

DRUGS (4)
  1. VEKLURY [Suspect]
     Active Substance: REMDESIVIR
     Indication: COVID-19
     Dosage: 200 MG, QD
     Route: 042
     Dates: start: 20240801, end: 20240801
  2. VEKLURY [Suspect]
     Active Substance: REMDESIVIR
     Dosage: 100 MG, QD
     Route: 042
     Dates: start: 20240802, end: 20240810
  3. SOLU-MEDROL [Concomitant]
     Active Substance: METHYLPREDNISOLONE SODIUM SUCCINATE
     Indication: Pneumonia aspiration
     Dosage: UNK
     Dates: start: 20240729
  4. LAGEVRIO [Concomitant]
     Active Substance: MOLNUPIRAVIR
     Dosage: UNK
     Dates: start: 20240729, end: 20240731

REACTIONS (5)
  - Diabetes mellitus inadequate control [Fatal]
  - Pneumonia aspiration [Fatal]
  - Respiration abnormal [Fatal]
  - Blood sodium increased [Recovering/Resolving]
  - Product preparation error [Recovered/Resolved]

NARRATIVE: CASE EVENT DATE: 20240807
